FAERS Safety Report 5002221-6 (Version None)
Quarter: 2006Q2

REPORT INFORMATION
  Report Type: 
  Country: None (occurrence: None)
  Receive Date: 20060510
  Receipt Date: 20060427
  Transmission Date: 20061013
  Serious: Yes (Disabling)
  Sender: FDA-Public Use
  Company Number: ABTXP-06-0031

PATIENT
  Age: 55 Year
  Sex: Female
  Weight: 56.8 kg

DRUGS (10)
  1. ABRAXANE FOR INJECTABLE SUSPENSION (SEE IMAGE) [Suspect]
     Indication: BREAST CANCER METASTATIC
     Dosage: PATIENT RECEIVED 2 DOSES AT 260 MG/M2 (EVERY 3 WEEKS) INTRAVENOUS DRIP
     Route: 041
     Dates: start: 20051006
  2. LEVOXYL [Concomitant]
  3. ZOFRAN [Concomitant]
  4. ZANTAC [Concomitant]
  5. B COMPLEX ELX [Concomitant]
  6. FEMARA [Concomitant]
  7. XANAX [Concomitant]
  8. BENADRYL [Concomitant]
  9. KYTRIL [Concomitant]
  10. AREDIA [Concomitant]

REACTIONS (4)
  - DYSPHAGIA [None]
  - DYSPHONIA [None]
  - VOCAL CORD DISORDER [None]
  - VOCAL CORD PARESIS [None]
